FAERS Safety Report 24564163 (Version 1)
Quarter: 2024Q4

REPORT INFORMATION
  Report Type: Spontaneous
  Country: JP (occurrence: JP)
  Receive Date: 20241030
  Receipt Date: 20241030
  Transmission Date: 20250115
  Serious: Yes (Hospitalization)
  Sender: ROCHE
  Company Number: JP-CHUGAI-2024037299AA

PATIENT
  Age: 81 Year
  Sex: Male
  Weight: 43.2 kg

DRUGS (6)
  1. TECENTRIQ [Suspect]
     Active Substance: ATEZOLIZUMAB
     Indication: Squamous cell carcinoma of lung
     Dosage: 1200 MILLIGRAM/DAY
     Route: 042
     Dates: start: 20240730
  2. ABRAXANE [Concomitant]
     Active Substance: PACLITAXEL
     Indication: Squamous cell carcinoma of lung
     Dosage: UNK
     Route: 050
  3. CARBOPLATIN [Concomitant]
     Active Substance: CARBOPLATIN
     Indication: Squamous cell carcinoma of lung
     Dosage: UNK
     Route: 042
  4. DEXAMETHASONE SODIUM PHOSPHATE [Concomitant]
     Active Substance: DEXAMETHASONE SODIUM PHOSPHATE
     Dosage: UNK
     Route: 050
  5. ALOXI [Concomitant]
     Active Substance: PALONOSETRON HYDROCHLORIDE
     Dosage: UNK
     Route: 050
  6. FOSNETUPITANT CHLORIDE HYDROCHLORIDE [Concomitant]
     Active Substance: FOSNETUPITANT CHLORIDE HYDROCHLORIDE
     Dosage: UNK
     Route: 050

REACTIONS (1)
  - Adrenocorticotropic hormone deficiency [Recovered/Resolved]

NARRATIVE: CASE EVENT DATE: 20240906
